FAERS Safety Report 7676089-3 (Version None)
Quarter: 2011Q3

REPORT INFORMATION
  Report Type: 
  Country: None (occurrence: None)
  Receive Date: 20110805
  Receipt Date: 20110721
  Transmission Date: 20111222
  Serious: Yes (Death)
  Sender: FDA-Public Use
  Company Number: 2011MA009236

PATIENT
  Age: 33 Year
  Sex: Female

DRUGS (2)
  1. CYCLOPHOSPHAMIDE [Suspect]
     Indication: RENAL CELL CARCINOMA
     Dosage: 60 MG
  2. FLUDARABINE PHOSPHATE [Suspect]
     Indication: RENAL CELL CARCINOMA
     Dosage: 25 MG/ M* * 2

REACTIONS (3)
  - NEOPLASM PROGRESSION [None]
  - PREMATURE MENOPAUSE [None]
  - METASTATIC RENAL CELL CARCINOMA [None]
